FAERS Safety Report 8194938-X (Version None)
Quarter: 2012Q1

REPORT INFORMATION
  Report Type: 
  Country: None (occurrence: None)
  Receive Date: 20120308
  Receipt Date: 20110711
  Transmission Date: 20120608
  Serious: No
  Sender: FDA-Public Use
  Company Number: US-GLAXOSMITHKLINE-A0936908A

PATIENT
  Age: 58 Year
  Sex: Female

DRUGS (3)
  1. SYNTHROID [Concomitant]
     Indication: HYPOTHYROIDISM
     Route: 048
  2. NICORETTE [Suspect]
     Indication: SMOKING CESSATION THERAPY
  3. CHANTIX [Suspect]
     Dosage: .5MG PER DAY
     Route: 048

REACTIONS (2)
  - ADVERSE EVENT [None]
  - CROHN'S DISEASE [None]
